FAERS Safety Report 7543326-5 (Version None)
Quarter: 2011Q2

REPORT INFORMATION
  Report Type: 
  Country: None (occurrence: None)
  Receive Date: 20110613
  Receipt Date: 20110608
  Transmission Date: 20111010
  Serious: Yes (Other)
  Sender: FDA-Public Use
  Company Number: FR-PFIZER INC-2011126780

PATIENT
  Sex: Male

DRUGS (2)
  1. CIALIS [Suspect]
  2. XANAX [Suspect]

REACTIONS (3)
  - RETINAL DETACHMENT [None]
  - TOXICITY TO VARIOUS AGENTS [None]
  - OCULAR DISCOMFORT [None]
